FAERS Safety Report 6983515-1 (Version None)
Quarter: 2010Q3

REPORT INFORMATION
  Report Type: 
  Country: None (occurrence: None)
  Receive Date: 20100914
  Receipt Date: 20080729
  Transmission Date: 20110219
  Serious: No
  Sender: FDA-Public Use
  Company Number: US-WYE-H05325508

PATIENT
  Age: 36 Year
  Sex: Female

DRUGS (2)
  1. ADVIL LIQUI-GELS [Suspect]
     Indication: ANALGESIC THERAPY
     Dosage: UNKNOWN
     Route: 048
     Dates: start: 20080722
  2. LIDOCAINE [Suspect]
     Dosage: UNKNOWN
     Route: 062
     Dates: start: 20080701

REACTIONS (2)
  - DIARRHOEA [None]
  - SKIN IRRITATION [None]
